FAERS Safety Report 8074438-8 (Version None)
Quarter: 2012Q1

REPORT INFORMATION
  Report Type: 
  Country: None (occurrence: None)
  Receive Date: 20120126
  Receipt Date: 20120125
  Transmission Date: 20120608
  Serious: Yes (Other)
  Sender: FDA-Public Use
  Company Number: DK-AMGEN-QUU440000

PATIENT
  Age: 73 Year
  Sex: Female
  Weight: 65 kg

DRUGS (3)
  1. TRANEXAMIC ACID [Concomitant]
     Dosage: 1 G, UNK
     Route: 048
     Dates: start: 20100921
  2. IMMUNE GLOBULIN NOS [Concomitant]
     Dosage: 30 G, QD
     Dates: start: 20100707, end: 20100710
  3. NPLATE [Suspect]
     Indication: IDIOPATHIC THROMBOCYTOPENIC PURPURA
     Dosage: 325 MG, QWK
     Route: 058
     Dates: start: 20100720

REACTIONS (3)
  - PLATELET COUNT DECREASED [None]
  - PYREXIA [None]
  - THERAPEUTIC RESPONSE DECREASED [None]
